FAERS Safety Report 8803168 (Version 1)
Quarter: 2012Q4

REPORT INFORMATION
  Report Type: 
  Country: US (occurrence: US)
  Receive Date: 20120924
  Receipt Date: 20120924
  Transmission Date: 20130627
  Serious: No
  Sender: FDA-Public Use
  Company Number: US-009507513-1208USA001081

PATIENT
  Age: 55 Year
  Sex: Male
  Weight: 97.51 kg

DRUGS (19)
  1. VICTRELIS [Suspect]
     Dosage: 4 capsules (800) mg by mouth three times a day
     Route: 048
  2. REBETOL [Suspect]
     Dosage: 200 mg, UNK
  3. PEGASYS [Concomitant]
  4. CELLCEPT [Concomitant]
     Dosage: 500 mg, UNK
  5. PROTONIX [Concomitant]
     Dosage: 20 mg, UNK
  6. LASIX (FUROSEMIDE) [Concomitant]
     Dosage: 20 mg, UNK
  7. LANTUS [Concomitant]
     Dosage: Dose : 100/ml
  8. NOVOLOG [Concomitant]
     Dosage: 100/ML
  9. ASCORBIC ACID [Concomitant]
     Dosage: 500 mg, UNK
  10. OXYCODONE [Concomitant]
     Dosage: 5 mg, UNK
  11. PROGRAF [Concomitant]
     Dosage: 0.5 mg, UNK
  12. NEPHRO VITE [Concomitant]
  13. SENNATAB [Concomitant]
     Dosage: 8.6 mg, Senna lax tab
  14. OMEGA-3 MARINE TRIGLYCERIDES [Concomitant]
  15. CALCIUM (UNSPECIFIED) [Concomitant]
     Dosage: CALCIUM 500 TAB
  16. ASPIRIN TABLETS [Concomitant]
     Dosage: 81 mg, ASPIRIN ADLT TAB
  17. ANDRODERM [Concomitant]
     Dosage: ANDRODERM DIS 2.5 MG/24
  18. NEUPOGEN [Concomitant]
     Dosage: 300 Microgram, UNK
  19. CHOLECALCIFEROL [Concomitant]
     Dosage: Vitamin D3

REACTIONS (1)
  - Anaemia [Unknown]
